FAERS Safety Report 8901169 (Version 1)
Quarter: 2012Q4

REPORT INFORMATION
  Report Type: 
  Country: US (occurrence: US)
  Receive Date: 20121109
  Receipt Date: 20121109
  Transmission Date: 20130627
  Serious: No
  Sender: FDA-Public Use
  Company Number: US-VERTEX PHARMACEUTICAL INC.-2012-020529

PATIENT
  Age: 62 Year
  Sex: Female
  Weight: 90 kg

DRUGS (3)
  1. TELAPREVIR [Suspect]
     Indication: HEPATITIS C
     Dosage: 750 mg, qd
     Route: 048
     Dates: start: 20120824
  2. PEGASYS [Concomitant]
     Indication: HEPATITIS C
     Dosage: 180 ?g, weekly
     Route: 058
     Dates: start: 20120824
  3. RIBASPHERE [Concomitant]
     Indication: HEPATITIS C
     Dosage: 600 mg, UNK
     Route: 048
     Dates: start: 20120824

REACTIONS (3)
  - Anorectal discomfort [Unknown]
  - Proctalgia [Unknown]
  - Anal pruritus [Unknown]
